FAERS Safety Report 14695585 (Version 1)
Quarter: 2018Q1

REPORT INFORMATION
  Report Type: Spontaneous
  Country: DE (occurrence: DE)
  Receive Date: 20180329
  Receipt Date: 20180329
  Transmission Date: 20180509
  Serious: Yes (Other)
  Sender: FDA-Public Use
  Company Number: DE-TEVA-2018-DE-872886

PATIENT
  Age: 33 Year
  Sex: Female

DRUGS (1)
  1. QUETIAPIN-RATIOPHARM RETARDTABLETTEN [Suspect]
     Active Substance: QUETIAPINE
     Route: 048
     Dates: start: 2009

REACTIONS (6)
  - Malaise [Unknown]
  - Anxiety [Recovered/Resolved]
  - Thoracic vertebral fracture [Unknown]
  - Weight increased [Unknown]
  - Dizziness [Unknown]
  - Spinal deformity [Unknown]
